FAERS Safety Report 17373451 (Version 1)
Quarter: 2020Q1

REPORT INFORMATION
  Report Type: Spontaneous
  Country: US (occurrence: US)
  Receive Date: 20200121
  Receipt Date: 20200121
  Transmission Date: 20200409
  Serious: No
  Sender: FDA-Public Use
  Company Number: None

PATIENT
  Age: 59 Year
  Sex: Male

DRUGS (1)
  1. TEMOZOLOMIDE 180MG CAP [Suspect]
     Active Substance: TEMOZOLOMIDE
     Indication: BRAIN NEOPLASM MALIGNANT
     Dosage: ?          OTHER FREQUENCY:UNKNOWN;?
     Route: 048
     Dates: start: 201912

REACTIONS (3)
  - Vomiting [None]
  - Product physical issue [None]
  - Product tampering [None]

NARRATIVE: CASE EVENT DATE: 20200115
